FAERS Safety Report 23275171 (Version 2)
Quarter: 2023Q4

REPORT INFORMATION
  Report Type: Spontaneous
  Country: US (occurrence: US)
  Receive Date: 20231208
  Receipt Date: 20231212
  Transmission Date: 20240110
  Serious: Yes (Hospitalization)
  Sender: FDA-Public Use
  Company Number: US-Calliditas-2023CAL01557

PATIENT
  Age: 44 Year
  Sex: Female
  Weight: 68 kg

DRUGS (1)
  1. TARPEYO [Suspect]
     Active Substance: BUDESONIDE
     Indication: IgA nephropathy
     Dosage: 16 MG (4 MG CAPSULES) ONCE DAILY
     Route: 048
     Dates: start: 20231102

REACTIONS (9)
  - Malaise [Unknown]
  - Oedema peripheral [Unknown]
  - Wheezing [Unknown]
  - Dyspnoea [Unknown]
  - Nasal congestion [Unknown]
  - Nasopharyngitis [Unknown]
  - Proteinuria [Unknown]
  - Urine protein/creatinine ratio increased [Unknown]
  - Hospitalisation [Recovered/Resolved]

NARRATIVE: CASE EVENT DATE: 20231130
